FAERS Safety Report 8079225-2 (Version None)
Quarter: 2012Q1

REPORT INFORMATION
  Report Type: 
  Country: None (occurrence: None)
  Receive Date: 20120128
  Receipt Date: 20110819
  Transmission Date: 20120608
  Serious: No
  Sender: FDA-Public Use
  Company Number: US-ABBOTT-11P-163-0847404-00

PATIENT
  Sex: Female

DRUGS (8)
  1. PREDNISONE TAB [Concomitant]
     Indication: RHEUMATOID ARTHRITIS
     Dosage: TAPERING DOSE FROM 5MG TO 10MG
  2. NYSTATIN [Concomitant]
     Indication: PRODUCT USED FOR UNKNOWN INDICATION
  3. LORTAB [Concomitant]
     Indication: PRODUCT USED FOR UNKNOWN INDICATION
  4. HUMIRA [Suspect]
     Indication: RHEUMATOID ARTHRITIS
     Route: 058
  5. LEVOTHYROXINE SODIUM [Concomitant]
     Indication: PRODUCT USED FOR UNKNOWN INDICATION
  6. FENTANYL [Concomitant]
     Indication: PRODUCT USED FOR UNKNOWN INDICATION
     Route: 062
  7. MUPIROCIN [Concomitant]
     Indication: PRODUCT USED FOR UNKNOWN INDICATION
  8. LEFLUNOMIDE [Concomitant]
     Indication: RHEUMATOID ARTHRITIS

REACTIONS (10)
  - RHEUMATOID ARTHRITIS [None]
  - CHILLS [None]
  - DECREASED APPETITE [None]
  - FATIGUE [None]
  - ADRENAL INSUFFICIENCY [None]
  - NAUSEA [None]
  - ASTHENIA [None]
  - JOINT SWELLING [None]
  - ARTHRALGIA [None]
  - DRUG INEFFECTIVE [None]
